FAERS Safety Report 5109815-8 (Version None)
Quarter: 2006Q3

REPORT INFORMATION
  Report Type: 
  Country: None (occurrence: None)
  Receive Date: 20060918
  Receipt Date: 20060918
  Transmission Date: 20061208
  Serious: Yes (Other)
  Sender: FDA-Public Use
  Company Number: None

PATIENT
  Sex: Female

DRUGS (1)
  1. METRONIDAZOLE [Suspect]
     Indication: INTESTINAL OBSTRUCTION
     Dosage: 500 MG Q 8 HOURS IV DRIP
     Route: 041
     Dates: start: 20060730, end: 20060730

REACTIONS (1)
  - TACHYCARDIA [None]
